FAERS Safety Report 12579579 (Version 1)
Quarter: 2016Q3

REPORT INFORMATION
  Report Type: Spontaneous
  Country: SE (occurrence: SE)
  Receive Date: 20160721
  Receipt Date: 20160721
  Transmission Date: 20161109
  Serious: Yes (Hospitalization, Disabling)
  Sender: FDA-Public Use
  Company Number: SE-PFIZER INC-2016346803

PATIENT
  Age: 74 Year
  Sex: Male

DRUGS (6)
  1. SPRYCEL [Interacting]
     Active Substance: DASATINIB
     Indication: CHRONIC MYELOID LEUKAEMIA
     Dosage: UNK, DAILY
     Route: 065
     Dates: start: 20130816, end: 20160111
  2. SPRYCEL [Interacting]
     Active Substance: DASATINIB
     Dosage: UNK
     Route: 065
     Dates: start: 20160524
  3. CORDARONE [Suspect]
     Active Substance: AMIODARONE HYDROCHLORIDE
     Indication: VENTRICULAR ARRHYTHMIA
     Dosage: 200 MG, DAILY
     Route: 048
     Dates: start: 20150318
  4. MIRTAZAPINE. [Concomitant]
     Active Substance: MIRTAZAPINE
     Dosage: UNK
     Dates: start: 20151015
  5. WARAN [Concomitant]
     Active Substance: WARFARIN SODIUM
     Dosage: UNK
  6. SPRYCEL [Interacting]
     Active Substance: DASATINIB
     Dosage: UNK
     Dates: start: 20160112, end: 20160520

REACTIONS (5)
  - Condition aggravated [Unknown]
  - Pleural effusion [Unknown]
  - Renal failure [Unknown]
  - Cardiac failure [Unknown]
  - Drug interaction [Unknown]

NARRATIVE: CASE EVENT DATE: 20160512
